FAERS Safety Report 6316798-1 (Version None)
Quarter: 2009Q3

REPORT INFORMATION
  Report Type: 
  Country: None (occurrence: None)
  Receive Date: 20090820
  Receipt Date: 20090817
  Transmission Date: 20100115
  Serious: Yes (Death, Other)
  Sender: FDA-Public Use
  Company Number: PHHY2009FR32783

PATIENT
  Age: 34 Year
  Sex: Male

DRUGS (1)
  1. LEPONEX [Suspect]
     Indication: DEPRESSION
     Dosage: UNK
     Route: 048

REACTIONS (6)
  - BALANCE DISORDER [None]
  - FALL [None]
  - GENERAL PHYSICAL HEALTH DETERIORATION [None]
  - IMPAIRED SELF-CARE [None]
  - MOVEMENT DISORDER [None]
  - SUDDEN DEATH [None]
